FAERS Safety Report 4773414-8 (Version None)
Quarter: 2005Q3

REPORT INFORMATION
  Report Type: 
  Country: None (occurrence: None)
  Receive Date: 20050914
  Receipt Date: 20041021
  Transmission Date: 20060218
  Serious: Yes (Other)
  Sender: FDA-Public Use
  Company Number: 163-20785-04100656

PATIENT
  Age: 68 Year
  Sex: Male

DRUGS (7)
  1. THALOMID [Suspect]
     Indication: MULTIPLE MYELOMA
     Dosage: 200 MG, DAILY, ORAL
     Route: 048
     Dates: start: 20040921, end: 20040924
  2. PSI-341 (UNKNOWN) [Suspect]
     Indication: MULTIPLE MYELOMA
     Dosage: 1.3 MG/M^2; SEE IMAGE
     Dates: start: 20040825, end: 20040825
  3. PSI-341 (UNKNOWN) [Suspect]
     Indication: MULTIPLE MYELOMA
     Dosage: 1.3 MG/M^2; SEE IMAGE
     Dates: start: 20040828, end: 20040828
  4. PSI-341 (UNKNOWN) [Suspect]
     Indication: MULTIPLE MYELOMA
     Dosage: 1.3 MG/M^2; SEE IMAGE
     Dates: start: 20040901, end: 20040901
  5. PSI-341 (UNKNOWN) [Suspect]
     Indication: MULTIPLE MYELOMA
     Dosage: 1.3 MG/M^2; SEE IMAGE
     Dates: start: 20040904, end: 20040904
  6. PSI-341 (UNKNOWN) [Suspect]
     Indication: MULTIPLE MYELOMA
     Dosage: 1.3 MG/M^2; SEE IMAGE
     Dates: start: 20040921, end: 20040921
  7. PSI-341 (UNKNOWN) [Suspect]
     Indication: MULTIPLE MYELOMA
     Dosage: 1.3 MG/M^2; SEE IMAGE
     Dates: start: 20040924, end: 20040924

REACTIONS (1)
  - FATIGUE [None]
